FAERS Safety Report 10401935 (Version 1)
Quarter: 2014Q3

REPORT INFORMATION
  Report Type: Spontaneous
  Country: US (occurrence: US)
  Receive Date: 20140822
  Receipt Date: 20140822
  Transmission Date: 20150326
  Serious: Yes (Death)
  Sender: FDA-Public Use
  Company Number: PHHY2014US104158

PATIENT
  Age: 48 Year
  Sex: Female
  Weight: 92.7 kg

DRUGS (2)
  1. NAPROXEN. [Suspect]
     Active Substance: NAPROXEN
     Indication: MUSCLE STRAIN
     Dosage: 500 MG, BID
  2. CYCLOBENZAPRINE [Suspect]
     Active Substance: CYCLOBENZAPRINE
     Indication: MUSCLE STRAIN
     Dosage: 10 MG, TID

REACTIONS (4)
  - Non-small cell lung cancer metastatic [Fatal]
  - Constipation [Unknown]
  - Balance disorder [Unknown]
  - Drug ineffective [Unknown]
